FAERS Safety Report 4420294-6 (Version None)
Quarter: 2004Q3

REPORT INFORMATION
  Report Type: 
  Country: None (occurrence: None)
  Receive Date: 20040809
  Receipt Date: 20040331
  Transmission Date: 20050211
  Serious: No
  Sender: FDA-Public Use
  Company Number: US-GLAXOSMITHKLINE-A0505400A

PATIENT
  Sex: Female

DRUGS (5)
  1. PAXIL [Suspect]
     Indication: DEPRESSION
     Dosage: 30MG PER DAY
     Route: 048
     Dates: end: 20040215
  2. MORPHINE [Concomitant]
  3. OXYCONTIN [Concomitant]
  4. KLONOPIN [Concomitant]
  5. LEVOXYL [Concomitant]

REACTIONS (7)
  - AGEUSIA [None]
  - DIZZINESS [None]
  - DYSGEUSIA [None]
  - HEADACHE [None]
  - NAUSEA [None]
  - ORAL DISCOMFORT [None]
  - VOMITING [None]
